FAERS Safety Report 4714895-5 (Version None)
Quarter: 2005Q3

REPORT INFORMATION
  Report Type: 
  Country: None (occurrence: None)
  Receive Date: 20050715
  Receipt Date: 20050707
  Transmission Date: 20060218
  Serious: Yes (Hospitalization)
  Sender: FDA-Public Use
  Company Number: PHBS2005JP09734

PATIENT
  Age: 77 Year
  Sex: Male

DRUGS (5)
  1. LIVALO [Suspect]
     Indication: HYPERCHOLESTEROLAEMIA
     Dosage: 2 MG/DAY
     Route: 048
     Dates: start: 20050613, end: 20050615
  2. THEO-DUR [Suspect]
     Route: 048
  3. ALLOPURINOL [Suspect]
     Route: 048
  4. OMEPRAZOLE [Suspect]
     Route: 048
  5. DIOVAN [Suspect]
     Route: 048

REACTIONS (3)
  - BLOOD CREATINE PHOSPHOKINASE INCREASED [None]
  - CHEST DISCOMFORT [None]
  - RHABDOMYOLYSIS [None]
